FAERS Safety Report 8053356-5 (Version None)
Quarter: 2012Q1

REPORT INFORMATION
  Report Type: 
  Country: None (occurrence: None)
  Receive Date: 20120118
  Receipt Date: 20120110
  Transmission Date: 20120608
  Serious: Yes (Hospitalization)
  Sender: FDA-Public Use
  Company Number: US-JNJFOC-20110804399

PATIENT
  Age: 49 Year
  Sex: Male
  Weight: 83.4 kg

DRUGS (1)
  1. TYLENOL PM [Suspect]
     Indication: PRODUCT USED FOR UNKNOWN INDICATION

REACTIONS (6)
  - TOXICITY TO VARIOUS AGENTS [None]
  - INTENTIONAL OVERDOSE [None]
  - SPEECH DISORDER [None]
  - SOMNOLENCE [None]
  - ABNORMAL BEHAVIOUR [None]
  - DISORIENTATION [None]
